FAERS Safety Report 7673758-6 (Version None)
Quarter: 2011Q3

REPORT INFORMATION
  Report Type: 
  Country: None (occurrence: None)
  Receive Date: 20110808
  Receipt Date: 20110722
  Transmission Date: 20111222
  Serious: Yes (Other)
  Sender: FDA-Public Use
  Company Number: 2011MA002856

PATIENT
  Sex: Female
  Weight: 78.9259 kg

DRUGS (69)
  1. TRAZODONE HCL [Concomitant]
  2. AZT [Concomitant]
  3. EFAVIRENZ [Concomitant]
  4. DIFLUCAN [Concomitant]
  5. PAMELOR [Concomitant]
  6. FOLIC ACID [Concomitant]
  7. VICODIN [Concomitant]
  8. ZANTAC [Concomitant]
  9. HYDROCODONE [Concomitant]
  10. CRESTOR [Concomitant]
  11. PRILOSEC [Concomitant]
  12. CARAFATE [Concomitant]
  13. MYLANTA [Concomitant]
  14. EFFEXOR [Concomitant]
  15. IMITREX [Concomitant]
  16. LAMIVUDINE + ZIDOVUDINE [Concomitant]
  17. NELFINAVIR MESYLATE [Concomitant]
  18. VALIUM [Concomitant]
  19. LEVAQUIN [Concomitant]
  20. HALDOL [Concomitant]
  21. COMBIVIR [Concomitant]
  22. IBUPROFEN [Concomitant]
  23. NAFAZIR [Concomitant]
  24. NORVASC [Concomitant]
  25. OMEPRAZOLE [Concomitant]
  26. CELEBREX [Concomitant]
  27. NEURONTIN [Concomitant]
  28. MOBIC [Concomitant]
  29. CYCLOBENZAPRINE [Concomitant]
  30. WELLBUTRIN [Concomitant]
  31. PRAVASTATIN [Concomitant]
  32. HYDROCHLOROTHIAZIDE [Concomitant]
  33. METOCLOPRAMIDE [Suspect]
     Indication: PRODUCT USED FOR UNKNOWN INDICATION
     Dosage: 10 MG, BID, PO
     Route: 048
     Dates: start: 20061101, end: 20090601
  34. BENADRYL [Concomitant]
  35. COCAINE [Concomitant]
  36. ALCOHOL [Concomitant]
  37. ROBAXIN [Concomitant]
  38. KEPPRA [Concomitant]
  39. DETROL LA [Concomitant]
  40. HYDROXYZINE [Concomitant]
  41. ZANTAC [Concomitant]
  42. RANITIDINE [Concomitant]
  43. PROZAC [Concomitant]
  44. SOLU-MEDROL [Concomitant]
  45. NICODERM CQ [Concomitant]
  46. TORADOL [Concomitant]
  47. GABITRIL [Concomitant]
  48. LYRICA [Concomitant]
  49. ATRIPLA [Concomitant]
  50. TOLTERODINE TARTRATE [Concomitant]
  51. AMLODIPINE [Concomitant]
  52. DILANTIN [Concomitant]
  53. MOTRIN [Concomitant]
  54. ZYBAN [Concomitant]
  55. PERCOCET [Concomitant]
  56. AMITRIPTYLINE HCL [Concomitant]
  57. CLONAZEPAM [Concomitant]
  58. AFOVIRSEN [Concomitant]
  59. FIORICET [Concomitant]
  60. PREVACID [Concomitant]
  61. RISPERDAL [Concomitant]
  62. ATARAX [Concomitant]
  63. ATIVAN [Concomitant]
  64. ORAL CONTRACEPTIVES [Concomitant]
  65. SEROQUEL [Concomitant]
  66. SKELAXIN [Concomitant]
  67. ZOLOFT [Concomitant]
  68. VITAMIN B-12 [Concomitant]
  69. VOLTAREN [Concomitant]

REACTIONS (51)
  - ECONOMIC PROBLEM [None]
  - HYPOAESTHESIA [None]
  - PARAESTHESIA [None]
  - EXCESSIVE EYE BLINKING [None]
  - COGNITIVE DISORDER [None]
  - GONORRHOEA [None]
  - HIV INFECTION [None]
  - URTICARIA [None]
  - CONTUSION [None]
  - EMOTIONAL DISORDER [None]
  - HEADACHE [None]
  - CHLAMYDIAL INFECTION [None]
  - PSYCHOTIC DISORDER [None]
  - VAGINAL DISCHARGE [None]
  - BREAST MASS [None]
  - MUSCULOSKELETAL STIFFNESS [None]
  - DIZZINESS [None]
  - HAEMORRHOIDS [None]
  - HEPATIC ENZYME INCREASED [None]
  - TARDIVE DYSKINESIA [None]
  - INJURY [None]
  - PAIN [None]
  - NEUROPATHY PERIPHERAL [None]
  - FACE OEDEMA [None]
  - TENDON RUPTURE [None]
  - BACK PAIN [None]
  - NECK PAIN [None]
  - AMNESIA [None]
  - BODY TINEA [None]
  - INSOMNIA [None]
  - OSTEOARTHRITIS [None]
  - NAUSEA [None]
  - GASTROOESOPHAGEAL REFLUX DISEASE [None]
  - HIATUS HERNIA [None]
  - MUSCULOSKELETAL PAIN [None]
  - URINARY TRACT INFECTION [None]
  - MENORRHAGIA [None]
  - DYSLIPIDAEMIA [None]
  - DYSPHEMIA [None]
  - AREFLEXIA [None]
  - PELVIC INFLAMMATORY DISEASE [None]
  - TRICHOMONIASIS [None]
  - ANXIETY [None]
  - PRURITUS [None]
  - DYSPHAGIA [None]
  - BURNING SENSATION [None]
  - SALPINGITIS [None]
  - VOMITING [None]
  - OESOPHAGITIS [None]
  - VISION BLURRED [None]
  - DEPRESSION [None]
